FAERS Safety Report 4771087-1 (Version None)
Quarter: 2005Q3

REPORT INFORMATION
  Report Type: 
  Country: None (occurrence: None)
  Receive Date: 20050914
  Receipt Date: 20050901
  Transmission Date: 20060218
  Serious: Yes (Other)
  Sender: FDA-Public Use
  Company Number: 2005123341

PATIENT
  Sex: Female

DRUGS (1)
  1. BENADRYL [Suspect]
     Indication: PRURITUS
     Dosage: ORAL
     Route: 048

REACTIONS (3)
  - ABASIA [None]
  - DRUG INEFFECTIVE [None]
  - MOVEMENT DISORDER [None]
